FAERS Safety Report 26049259 (Version 1)
Quarter: 2025Q4

REPORT INFORMATION
  Report Type: Spontaneous
  Country: EU (occurrence: EU)
  Receive Date: 20251115
  Receipt Date: 20251115
  Transmission Date: 20260118
  Serious: Yes (Other)
  Sender: BOEHRINGER INGELHEIM
  Company Number: EU-BoehringerIngelheim-2025-BI-107198

PATIENT
  Age: 72 Year
  Sex: Female
  Weight: 95 kg

DRUGS (12)
  1. OFEV [Suspect]
     Active Substance: NINTEDANIB
     Indication: Hypersensitivity pneumonitis
     Dates: start: 202203, end: 202207
  2. OXYGEN [Concomitant]
     Active Substance: OXYGEN
  3. PREDNISONE [Concomitant]
     Active Substance: PREDNISONE
  4. MYCOPHENOLIC ACID [Concomitant]
     Active Substance: MYCOPHENOLIC ACID
  5. TRIMETHOPRIM [Concomitant]
     Active Substance: TRIMETHOPRIM
     Indication: Infection prophylaxis
  6. REPAGLINIDE [Concomitant]
     Active Substance: REPAGLINIDE
     Indication: Diabetes mellitus
  7. TELMISARTAN [Concomitant]
     Active Substance: TELMISARTAN
  8. FLUTICASONE [Concomitant]
     Active Substance: FLUTICASONE
  9. PROPIONATE SALMETEROL [Concomitant]
  10. FOLIC ACID [Concomitant]
     Active Substance: FOLIC ACID
     Indication: Thalassaemia
  11. FUROSEMIDE [Concomitant]
     Active Substance: FUROSEMIDE
  12. RITUXIMAB [Concomitant]
     Active Substance: RITUXIMAB

REACTIONS (3)
  - Hypersensitivity pneumonitis [Not Recovered/Not Resolved]
  - Disease progression [Not Recovered/Not Resolved]
  - Gastrointestinal disorder [Unknown]

NARRATIVE: CASE EVENT DATE: 20220101
